FAERS Safety Report 4618271-5 (Version None)
Quarter: 2005Q2

REPORT INFORMATION
  Report Type: 
  Country: None (occurrence: None)
  Receive Date: 20050316
  Receipt Date: 20041129
  Transmission Date: 20051028
  Serious: Yes (Other)
  Sender: FDA-Public Use
  Company Number: S04-USA-07553-01

PATIENT
  Age: 75 Year
  Sex: Female

DRUGS (8)
  1. LEXAPRO [Suspect]
     Indication: ANXIETY
     Dosage: 10 MG QD PO
     Route: 048
     Dates: start: 20041001, end: 20041117
  2. LEXAPRO [Suspect]
     Indication: DEPRESSION
     Dosage: 10 MG QD PO
     Route: 048
     Dates: start: 20041001, end: 20041117
  3. ATIVAN [Concomitant]
  4. ATENOLOL [Concomitant]
  5. LEVOXYL [Concomitant]
  6. ZOCOR [Concomitant]
  7. TRIAMTERENE [Concomitant]
  8. CENTRUM [Concomitant]

REACTIONS (2)
  - SUICIDAL IDEATION [None]
  - UPPER RESPIRATORY TRACT INFECTION [None]
